FAERS Safety Report 8153263-3 (Version None)
Quarter: 2012Q1

REPORT INFORMATION
  Report Type: 
  Country: None (occurrence: None)
  Receive Date: 20120221
  Receipt Date: 20120123
  Transmission Date: 20120608
  Serious: No
  Sender: FDA-Public Use
  Company Number: DE-UCBSA-050629

PATIENT
  Age: 24 Month
  Sex: Male

DRUGS (2)
  1. VIMPAT [Suspect]
     Dosage: 15MG/ML; ROUTE: VIA JEJUNAL TUBE
     Route: 050
  2. PHENYTOIN [Concomitant]

REACTIONS (2)
  - OFF LABEL USE [None]
  - ILL-DEFINED DISORDER [None]
